FAERS Safety Report 10459776 (Version 1)
Quarter: 2014Q3

REPORT INFORMATION
  Report Type: Spontaneous
  Country: US (occurrence: US)
  Receive Date: 20140917
  Receipt Date: 20140917
  Transmission Date: 20150326
  Serious: No
  Sender: FDA-Public Use
  Company Number: US-GE HEALTHCARE MEDICAL DIAGNOSTICS-OPTN-PR-1409S-0016

PATIENT
  Sex: Female

DRUGS (2)
  1. OPTISON [Suspect]
     Active Substance: ALBUMIN (HUMAN)
     Indication: CHEST PAIN
     Dosage: DOSE NOT REPORTED
     Route: 065
     Dates: start: 20140908, end: 20140908
  2. OPTISON [Suspect]
     Active Substance: ALBUMIN (HUMAN)
     Indication: DIAGNOSTIC PROCEDURE

REACTIONS (2)
  - Drug administration error [Recovered/Resolved]
  - Haemorrhage [Recovered/Resolved]

NARRATIVE: CASE EVENT DATE: 20140908
